FAERS Safety Report 10977997 (Version 2)
Quarter: 2015Q4

REPORT INFORMATION
  Report Type: Spontaneous
  Country: EG (occurrence: EG)
  Receive Date: 20150402
  Receipt Date: 20151102
  Transmission Date: 20160304
  Serious: Yes (Other)
  Sender: FDA-Public Use
  Company Number: EG-AMGEN-EGYSP2015030915

PATIENT
  Age: 56 Year
  Sex: Female

DRUGS (1)
  1. PROLIA [Suspect]
     Active Substance: DENOSUMAB
     Indication: OSTEOPOROSIS
     Dosage: UNK, UNK
     Route: 065

REACTIONS (4)
  - Spinal osteoarthritis [Unknown]
  - Spinal fracture [Unknown]
  - Injury [Unknown]
  - Fall [Unknown]
